FAERS Safety Report 19170351 (Version 4)
Quarter: 2022Q2

REPORT INFORMATION
  Report Type: Spontaneous
  Country: US (occurrence: US)
  Receive Date: 20210422
  Receipt Date: 20220506
  Transmission Date: 20220720
  Serious: No
  Sender: FDA-Public Use
  Company Number: US-PFIZER INC-2021407210

PATIENT
  Age: 35 Year
  Sex: Female

DRUGS (2)
  1. XELJANZ XR [Suspect]
     Active Substance: TOFACITINIB CITRATE
     Indication: Rheumatoid arthritis
     Dosage: 11 MG, 1X/DAY
     Route: 048
     Dates: start: 202101, end: 202110
  2. PREDNISONE [Concomitant]
     Active Substance: PREDNISONE
     Dosage: 2 MG

REACTIONS (7)
  - Therapeutic product effect incomplete [Unknown]
  - Drug ineffective [Unknown]
  - Pain [Unknown]
  - Discouragement [Unknown]
  - Swelling [Unknown]
  - Joint instability [Unknown]
  - Joint warmth [Unknown]

NARRATIVE: CASE EVENT DATE: 20210101
